FAERS Safety Report 17156842 (Version 1)
Quarter: 2019Q4

REPORT INFORMATION
  Report Type: Spontaneous
  Country: ES (occurrence: ES)
  Receive Date: 20191216
  Receipt Date: 20191216
  Transmission Date: 20200122
  Serious: Yes (Other)
  Sender: FDA-Public Use
  Company Number: ES-TEVA-2019-ES-1151050

PATIENT
  Age: 45 Year
  Sex: Female

DRUGS (1)
  1. GABAPENTINA 400 MG CAPSULA [Suspect]
     Active Substance: GABAPENTIN
     Indication: STENOSIS
     Dosage: 1-0-1 (400 MG PER 12 HOURS)
     Dates: start: 20191016, end: 20191018

REACTIONS (3)
  - Depressed level of consciousness [Unknown]
  - Visual impairment [Unknown]
  - Dizziness [Unknown]

NARRATIVE: CASE EVENT DATE: 20191018
